FAERS Safety Report 4627362-4 (Version None)
Quarter: 2005Q2

REPORT INFORMATION
  Report Type: 
  Country: None (occurrence: None)
  Receive Date: 20050405
  Receipt Date: 20050317
  Transmission Date: 20051028
  Serious: Yes (Life-Threatening)
  Sender: FDA-Public Use
  Company Number: CEL-2005-00399-ROC

PATIENT
  Age: 62 Year
  Sex: Male

DRUGS (2)
  1. ZAROXOLYN [Suspect]
     Indication: DIURETIC THERAPY
     Dates: start: 20050101
  2. BIBR 1048 (DABIGATRAN ETEXILATE) [Concomitant]

REACTIONS (5)
  - BLOOD CREATININE INCREASED [None]
  - BLOOD UREA INCREASED [None]
  - DEHYDRATION [None]
  - DRUG INEFFECTIVE [None]
  - HYPOTENSION [None]
